FAERS Safety Report 5567700-1 (Version None)
Quarter: 2007Q4

REPORT INFORMATION
  Report Type: 
  Country: None (occurrence: None)
  Receive Date: 20071217
  Receipt Date: 20071207
  Transmission Date: 20080405
  Serious: Yes (Other)
  Sender: FDA-Public Use
  Company Number: 2007337204

PATIENT
  Sex: Female

DRUGS (3)
  1. VISINE A.C. (ZINC SULFATE, TETRYZOLINE) [Suspect]
     Indication: OCULAR HYPERAEMIA
     Dosage: ONCE, OPHTHALMIC
     Route: 047
     Dates: start: 20071207, end: 20071207
  2. DRUG, UNSPECIFIED (DRUG, UNSPECIFIED) [Suspect]
  3. DRUN, UNSPECIFIED (DRUG, UNSPECIFIED) [Concomitant]

REACTIONS (1)
  - EYE IRRITATION [None]
